FAERS Safety Report 5951953-1 (Version None)
Quarter: 2008Q4

REPORT INFORMATION
  Report Type: 
  Country: None (occurrence: None)
  Receive Date: 20081113
  Receipt Date: 20071008
  Transmission Date: 20090506
  Serious: No
  Sender: FDA-Public Use
  Company Number: A0684406A

PATIENT
  Sex: Male

DRUGS (1)
  1. COREG [Suspect]
     Indication: DRUG USE FOR UNKNOWN INDICATION
     Route: 048
     Dates: start: 20070901

REACTIONS (2)
  - DRUG INEFFECTIVE [None]
  - HEART RATE INCREASED [None]
